FAERS Safety Report 8056612 (Version 33)
Quarter: 2014Q1

REPORT INFORMATION
  Report Type: Report from Study
  Country: GB (occurrence: GB)
  Receive Date: 20110727
  Receipt Date: 20140206
  Transmission Date: 20141002
  Serious: Yes (Hospitalization)
  Sender: FDA-Public Use
  Company Number: GB-ROCHE-790708

PATIENT
  Age: 2 Year
  Sex: Female
  Weight: 12.7 kg

DRUGS (33)
  1. BEVACIZUMAB [Suspect]
     Indication: RHABDOMYOSARCOMA
     Dosage: 7.5 MG/KG, FREQUENCY: DAY 1, LAST DOSE PRIOR TO SAE: 20/JUN/2012, 05/SEP/2012
     Route: 042
  2. IFOSFAMIDE [Suspect]
     Indication: RHABDOMYOSARCOMA
     Dosage: FREQUENCY: DAYS 1 AND 2.   DOSAGE FORM:3G/M2   LAST DOSE PRIOR TO SAE WAS TAKEN ON 24 NOV 2011
     Route: 042
  3. MESNA [Suspect]
     Indication: RHABDOMYOSARCOMA
     Dosage: FREQUENCY: DAYS 1 AND 2  DOSAGE FORM: 3600 MG/M2  LAST DOSE PRIOR TO SAE WAS TAKEN ON 31 AUG 2011
     Route: 042
  4. MESNA [Suspect]
     Dosage: FREQUENCY: OD,  DOSAGE FORM: 3600 MG/M2
     Route: 042
  5. MESNA [Suspect]
     Dosage: DATE OF LAST DOSE PRIOR TO SAE: 21 SEP 2011
     Route: 042
  6. ACTINOMYCIN D [Suspect]
     Indication: RHABDOMYOSARCOMA
     Dosage: FREQUENCY: DAY 1  OF CYCLE DOSAGE: 1.5 MG/M2   LAST DOSE PRIOR TO SAE WAS TAKEN ON 30 AUG 2011
     Route: 042
  7. ACTINOMYCIN D [Suspect]
     Dosage: DATE OF LAST DOSE PRIOR TO ONSET OF SAE: 11 OCT 2011
     Route: 042
  8. DACTINOMYCIN [Suspect]
     Indication: RHABDOMYOSARCOMA
     Dosage: DOSAGE: 1-5 MG/M2, DAY 1, DATE OF LAST DOSE PRIOR TO SAE: 23 NOV 2011
     Route: 042
     Dates: start: 20110712
  9. VINCRISTINE [Suspect]
     Indication: RHABDOMYOSARCOMA
     Dosage: DOSAGE CUMM: 1.5 MG/M2, FREQUENCY DAYS 1,8 AND 15 OF CYCLELAST DOSEPRIOR TO SAE: 23 NOV 2011
     Route: 042
     Dates: start: 20110712
  10. DOXORUBICIN [Suspect]
     Indication: RHABDOMYOSARCOMA
     Dosage: FREQUENCY: DAYS 1 AND 2    DOSAGE: 30 MG/M2   LAST DOSE PRIOR TO SAE WAS TAKEN ON 31 AUG 2011
     Route: 042
     Dates: start: 20110712
  11. VINORELBINE [Suspect]
     Indication: RHABDOMYOSARCOMA
     Dosage: LAST DOSE PRIOR TO SAE:20/JUN/2012, 29/AUG/2012, 08/MAY/2012
     Route: 042
     Dates: start: 20120301
  12. CYCLOPHOSPHAMIDE [Suspect]
     Indication: RHABDOMYOSARCOMA
     Dosage: LAST DOSE PRIOR TO SAE 23/JUN/2012, 07/SEP;/2012, 11/MAY/2012
     Route: 048
     Dates: start: 20120301
  13. PARACETAMOL [Concomitant]
     Route: 048
  14. ONDANSETRON [Concomitant]
     Route: 048
  15. ONDANSETRON [Concomitant]
     Route: 048
     Dates: start: 20110901, end: 20110907
  16. ONDANSETRON [Concomitant]
     Route: 048
  17. ONDANSETRON [Concomitant]
     Route: 065
     Dates: start: 20111125, end: 20111129
  18. ONDANSETRON [Concomitant]
     Route: 065
  19. FLUCONAZOLE [Concomitant]
     Route: 042
  20. LEVOMEPROMAZINE [Concomitant]
     Route: 042
  21. LEVOMEPROMAZINE [Concomitant]
     Route: 065
     Dates: start: 20111125, end: 20111127
  22. CO-TRIMOXAZOLE [Concomitant]
     Route: 048
  23. DOCUSATE [Concomitant]
     Route: 048
  24. DOCUSATE [Concomitant]
     Route: 065
  25. DOCUSATE [Concomitant]
     Route: 065
  26. GENTAMYCIN [Concomitant]
     Route: 042
     Dates: start: 20110817, end: 20110824
  27. PIPERACILLIN/TAZOBACTAM [Concomitant]
     Dosage: 1070 QDS
     Route: 042
     Dates: start: 20110817, end: 20110824
  28. MORPHINE [Concomitant]
     Dosage: DRUG REPORTED AS MORPHINE SULPHATE
     Route: 048
  29. CEFIXIME [Concomitant]
     Route: 065
     Dates: start: 20120417
  30. TEMOZOLOMIDE [Concomitant]
     Route: 065
     Dates: start: 20120915
  31. IRINOTECAN [Concomitant]
     Route: 065
     Dates: start: 20120915
  32. ONDANSETRON [Concomitant]
     Route: 065
     Dates: start: 20120915
  33. FILGRASTIM [Concomitant]
     Route: 042
     Dates: start: 20110903

REACTIONS (9)
  - Candida test positive [Recovered/Resolved]
  - Mucosal inflammation [Not Recovered/Not Resolved]
  - Febrile neutropenia [Not Recovered/Not Resolved]
  - Febrile neutropenia [Recovered/Resolved]
  - Epistaxis [Recovered/Resolved]
  - Epistaxis [Recovered/Resolved]
  - Epistaxis [Recovered/Resolved]
  - Epistaxis [Recovered/Resolved]
  - Epistaxis [Recovered/Resolved]
